FAERS Safety Report 5239559-3 (Version None)
Quarter: 2007Q1

REPORT INFORMATION
  Report Type: 
  Country: None (occurrence: None)
  Receive Date: 20070216
  Receipt Date: 20070208
  Transmission Date: 20070707
  Serious: Yes (Other)
  Sender: FDA-Public Use
  Company Number: GB-ROCHE-462332

PATIENT
  Sex: Male
  Weight: 2.7 kg

DRUGS (3)
  1. INVIRASE [Suspect]
     Indication: DRUG USE FOR UNKNOWN INDICATION
     Route: 064
     Dates: start: 20060425
  2. NORVIR [Suspect]
     Indication: HIV INFECTION
     Route: 064
     Dates: start: 20060425
  3. COMBIVIR [Suspect]
     Indication: HIV INFECTION
     Dosage: DOSAGE UNIT: TABS OR CAPS
     Route: 064
     Dates: start: 20060425

REACTIONS (2)
  - NO ADVERSE EFFECT [None]
  - NORMAL NEWBORN [None]
